FAERS Safety Report 4697710-8 (Version None)
Quarter: 2005Q2

REPORT INFORMATION
  Report Type: 
  Country: None (occurrence: None)
  Receive Date: 20050119
  Receipt Date: 20050119
  Transmission Date: 20051028
  Serious: Yes (Other)
  Sender: FDA-Public Use
  Company Number: None

PATIENT
  Sex: Female

DRUGS (2)
  1. HYDROCODONE BITARTRATE AND ACETAMINOPHEN [Suspect]
     Indication: MYALGIA
  2. HYDROCODONE BITARTRATE AND ACETAMINOPHEN [Suspect]
     Indication: SPINAL OSTEOARTHRITIS

REACTIONS (1)
  - HEADACHE [None]
